FAERS Safety Report 9000779 (Version 1)
Quarter: 2013Q1

REPORT INFORMATION
  Report Type: Spontaneous
  Country: TR (occurrence: TR)
  Receive Date: 20130107
  Receipt Date: 20130107
  Transmission Date: 20140127
  Serious: Yes (Death)
  Sender: FDA-Public Use
  Company Number: PHHY2013TR001257

PATIENT
  Age: 50 Year
  Sex: Female

DRUGS (1)
  1. SANDOSTATIN LAR [Suspect]
     Indication: THYROID CANCER
     Dosage: 30 MG,ONCE EVERY 28 DAYS

REACTIONS (1)
  - Cardiac failure [Fatal]
